FAERS Safety Report 5774426-8 (Version None)
Quarter: 2008Q2

REPORT INFORMATION
  Report Type: 
  Country: None (occurrence: None)
  Receive Date: 20080616
  Receipt Date: 20080604
  Transmission Date: 20081010
  Serious: Yes (Other)
  Sender: FDA-Public Use
  Company Number: US-PFIZER INC-2008033686

PATIENT
  Sex: Male
  Weight: 88.9 kg

DRUGS (12)
  1. CHANTIX [Suspect]
     Indication: SMOKING CESSATION THERAPY
     Route: 048
     Dates: start: 20080401, end: 20080410
  2. LEXAPRO [Suspect]
  3. METOPROLOL [Suspect]
  4. PERCOCET [Suspect]
  5. LOVASTATIN [Concomitant]
  6. OMEPRAZOLE [Concomitant]
  7. TOPAMAX [Concomitant]
  8. NIFEDIPINE [Concomitant]
  9. NIACIN [Concomitant]
  10. HYDROCODONE [Concomitant]
  11. NAPROXEN [Concomitant]
  12. ASPIRIN [Concomitant]

REACTIONS (2)
  - SOMNOLENCE [None]
  - URINARY INCONTINENCE [None]
